FAERS Safety Report 11919656 (Version 1)
Quarter: 2016Q1

REPORT INFORMATION
  Report Type: Spontaneous
  Country: US (occurrence: US)
  Receive Date: 20160115
  Receipt Date: 20160115
  Transmission Date: 20160526
  Serious: No
  Sender: FDA-Public Use
  Company Number: US-PFIZER INC-2015458240

PATIENT
  Age: 65 Year
  Sex: Female
  Weight: 113 kg

DRUGS (2)
  1. LISINOPRIL. [Concomitant]
     Active Substance: LISINOPRIL
     Indication: BLOOD PRESSURE ABNORMAL
     Dosage: 10 MG, 1X/DAY
     Dates: start: 2012
  2. ADVIL [Suspect]
     Active Substance: IBUPROFEN
     Indication: BACK PAIN
     Dosage: 400 MG, DAILY, 200MG TWO DAILY
     Dates: start: 2012

REACTIONS (1)
  - Peripheral coldness [Recovering/Resolving]

NARRATIVE: CASE EVENT DATE: 2012
